FAERS Safety Report 8329124-3 (Version None)
Quarter: 2012Q2

REPORT INFORMATION
  Report Type: 
  Country: None (occurrence: None)
  Receive Date: 20120502
  Receipt Date: 20101014
  Transmission Date: 20120825
  Serious: No
  Sender: FDA-Public Use
  Company Number: US-TEVA-2010005448

PATIENT
  Age: 57 Year
  Sex: Male

DRUGS (1)
  1. NUVIGIL [Suspect]
     Route: 048
     Dates: start: 20100510, end: 20101007

REACTIONS (2)
  - EYE SWELLING [None]
  - RASH [None]
